FAERS Safety Report 4803482-6 (Version None)
Quarter: 2005Q4

REPORT INFORMATION
  Report Type: 
  Country: None (occurrence: None)
  Receive Date: 20051014
  Receipt Date: 20051003
  Transmission Date: 20060501
  Serious: Yes (Life-Threatening, Hospitalization, Other)
  Sender: FDA-Public Use
  Company Number: 2005081522

PATIENT
  Age: 78 Year
  Sex: Female

DRUGS (11)
  1. LIPITOR [Suspect]
     Indication: BLOOD CHOLESTEROL INCREASED
     Dosage: 10 MG (10 MG 1 IN 1D ORAL)
     Route: 048
  2. XALATAN [Suspect]
     Indication: GLAUCOMA
     Dosage: 1 DROP 1 IN 1 D OPTHALAMIC
     Route: 047
     Dates: start: 20040101
  3. ALPHAGAN [Concomitant]
  4. TRUSOPT [Concomitant]
  5. ALREX (LOTEPREDNOL ETABONATE) [Concomitant]
  6. PLAVIX [Concomitant]
  7. ACETYLSALICYLIC ACID SRT [Concomitant]
  8. AMIODARONE HCL [Concomitant]
  9. MAVIK [Concomitant]
  10. ATENOLOL [Concomitant]
  11. NIACIN [Concomitant]

REACTIONS (11)
  - BODY HEIGHT DECREASED [None]
  - CARDIAC FAILURE CONGESTIVE [None]
  - CEREBELLAR ARTERY OCCLUSION [None]
  - CORONARY ARTERY DISEASE [None]
  - EJECTION FRACTION DECREASED [None]
  - MESENTERIC ARTERY STENOSIS [None]
  - MESENTERIC OCCLUSION [None]
  - MYOCARDIAL INFARCTION [None]
  - PULMONARY OEDEMA [None]
  - RESPIRATORY FAILURE [None]
  - TROPONIN INCREASED [None]
